FAERS Safety Report 14686766 (Version 1)
Quarter: 2018Q1

REPORT INFORMATION
  Report Type: Report from Study
  Country: US (occurrence: US)
  Receive Date: 20180327
  Receipt Date: 20180327
  Transmission Date: 20180509
  Serious: Yes (Hospitalization)
  Sender: FDA-Public Use
  Company Number: US-ACTELION-A-US2015-125431

PATIENT
  Age: 53 Year
  Sex: Female
  Weight: 65.76 kg

DRUGS (8)
  1. VELETRI [Suspect]
     Active Substance: EPOPROSTENOL
     Dosage: 28 NG/KG, PER MIN
     Route: 042
     Dates: start: 20141124
  2. REVATIO [Concomitant]
     Active Substance: SILDENAFIL CITRATE
  3. VELETRI [Suspect]
     Active Substance: EPOPROSTENOL
     Dosage: 33.3 NG/KG, PER MIN
     Route: 042
  4. LETAIRIS [Concomitant]
     Active Substance: AMBRISENTAN
  5. VELETRI [Suspect]
     Active Substance: EPOPROSTENOL
     Indication: PULMONARY ARTERIAL HYPERTENSION
     Dosage: 32 NG/KG, PER MIN
     Route: 042
  6. COUMADIN [Concomitant]
     Active Substance: WARFARIN SODIUM
  7. VELETRI [Suspect]
     Active Substance: EPOPROSTENOL
     Dosage: 27 NG/KG, PER MIN
     Route: 042
  8. SILDENAFIL CITRATE. [Concomitant]
     Active Substance: SILDENAFIL CITRATE

REACTIONS (28)
  - Device related infection [Unknown]
  - Catheter removal [Unknown]
  - Catheter site discharge [Unknown]
  - Muscle spasms [Unknown]
  - Arthralgia [Unknown]
  - Catheter site infection [Recovering/Resolving]
  - Rash [Unknown]
  - Myalgia [Unknown]
  - Palpitations [Unknown]
  - Catheter site erythema [Unknown]
  - Pain in jaw [Unknown]
  - Chest pain [Unknown]
  - Pharyngitis streptococcal [Not Recovered/Not Resolved]
  - Fall [Unknown]
  - Heart rate increased [Unknown]
  - Cardiac infection [Unknown]
  - Pain in extremity [Unknown]
  - Head injury [Unknown]
  - Nasopharyngitis [Unknown]
  - Flushing [Unknown]
  - Skin discolouration [Unknown]
  - Fatigue [Unknown]
  - Headache [Unknown]
  - Catheter site oedema [Unknown]
  - Catheter site pain [Unknown]
  - Pain [Recovered/Resolved]
  - Musculoskeletal pain [Unknown]
  - Drug administration error [Unknown]

NARRATIVE: CASE EVENT DATE: 20170117
